FAERS Safety Report 7784014-X (Version None)
Quarter: 2011Q3

REPORT INFORMATION
  Report Type: 
  Country: None (occurrence: None)
  Receive Date: 20110928
  Receipt Date: 20110920
  Transmission Date: 20111222
  Serious: Yes (Other)
  Sender: FDA-Public Use
  Company Number: US-JNJFOC-20110811955

PATIENT
  Age: 72 Year
  Sex: Male
  Weight: 95.26 kg

DRUGS (3)
  1. ZYVOX [Suspect]
     Indication: STAPHYLOCOCCAL INFECTION
     Route: 048
     Dates: start: 20110819, end: 20110829
  2. NEXIUM [Concomitant]
     Indication: GASTROOESOPHAGEAL REFLUX DISEASE
     Route: 065
  3. LEVAQUIN [Suspect]
     Indication: PRODUCT USED FOR UNKNOWN INDICATION
     Route: 065

REACTIONS (18)
  - ABDOMINAL DISTENSION [None]
  - HYPOTENSION [None]
  - EYE SWELLING [None]
  - NAUSEA [None]
  - HYPERSENSITIVITY [None]
  - OEDEMA PERIPHERAL [None]
  - DIZZINESS [None]
  - DIARRHOEA [None]
  - HEADACHE [None]
  - RENAL IMPAIRMENT [None]
  - PHOTOPHOBIA [None]
  - VISUAL IMPAIRMENT [None]
  - APTYALISM [None]
  - FLATULENCE [None]
  - DYSPHAGIA [None]
  - HAEMATOCRIT DECREASED [None]
  - BALANCE DISORDER [None]
  - DRUG INEFFECTIVE [None]
